FAERS Safety Report 4823615-5 (Version None)
Quarter: 2005Q4

REPORT INFORMATION
  Report Type: 
  Country: None (occurrence: None)
  Receive Date: 20051107
  Receipt Date: 20051024
  Transmission Date: 20060501
  Serious: Yes (Other)
  Sender: FDA-Public Use
  Company Number: 218327

PATIENT
  Age: 73 Year
  Sex: Female

DRUGS (2)
  1. AVASTIN [Suspect]
     Indication: COLON CANCER
     Dosage: 350 MG, Q2W, INTRAVENOUS
     Route: 042
     Dates: start: 20050621
  2. OXALIPLATIN (OXALIPLATIN) [Concomitant]

REACTIONS (2)
  - EXTRAVASATION [None]
  - PAIN [None]
